FAERS Safety Report 22208805 (Version 1)
Quarter: 2023Q2

REPORT INFORMATION
  Report Type: Report from Study
  Country: US (occurrence: US)
  Receive Date: 20230413
  Receipt Date: 20230413
  Transmission Date: 20230721
  Serious: Yes (Hospitalization)
  Sender: FDA-Public Use
  Company Number: US-ABBVIE-4720346

PATIENT
  Age: 57 Year
  Sex: Female
  Weight: 99.79 kg

DRUGS (3)
  1. HUMIRA [Suspect]
     Active Substance: ADALIMUMAB
     Indication: Rheumatoid arthritis
     Route: 058
     Dates: start: 20161116, end: 20230317
  2. HUMIRA [Suspect]
     Active Substance: ADALIMUMAB
     Indication: Sarcoidosis
  3. HUMIRA [Suspect]
     Active Substance: ADALIMUMAB
     Indication: Polymyositis

REACTIONS (7)
  - Intervertebral disc protrusion [Recovering/Resolving]
  - Discomfort [Recovering/Resolving]
  - Malaise [Recovering/Resolving]
  - Off label use [Not Recovered/Not Resolved]
  - Pain [Recovering/Resolving]
  - Gait disturbance [Recovering/Resolving]
  - Effusion [Recovered/Resolved]

NARRATIVE: CASE EVENT DATE: 20221001
